FAERS Safety Report 7709823-4 (Version None)
Quarter: 2011Q3

REPORT INFORMATION
  Report Type: 
  Country: None (occurrence: None)
  Receive Date: 20110825
  Receipt Date: 20110823
  Transmission Date: 20111222
  Serious: Yes (Death)
  Sender: FDA-Public Use
  Company Number: DE-MERCK-1107DEU00023

PATIENT
  Age: 71 Year
  Sex: Female

DRUGS (2)
  1. CANCIDAS [Suspect]
     Indication: CANDIDIASIS
     Route: 042
     Dates: start: 20110515, end: 20110518
  2. CANCIDAS [Suspect]
     Indication: FUNGAL SEPSIS
     Route: 042
     Dates: start: 20110515, end: 20110518

REACTIONS (2)
  - FUNGAL SEPSIS [None]
  - TRANSAMINASES INCREASED [None]
